FAERS Safety Report 9325404 (Version 4)
Quarter: 2013Q2

REPORT INFORMATION
  Report Type: Spontaneous
  Country: JP (occurrence: JP)
  Receive Date: 20130604
  Receipt Date: 20130620
  Transmission Date: 20140414
  Serious: Yes (Hospitalization)
  Sender: FDA-Public Use
  Company Number: JP-PFIZER INC-2013167025

PATIENT
  Age: 86 Year
  Sex: Male

DRUGS (2)
  1. CELECOX [Suspect]
     Indication: PAIN IN EXTREMITY
     Dosage: 400 MG, DAILY
     Route: 048
     Dates: start: 20130304, end: 20130306
  2. LYRICA [Concomitant]
     Indication: PAIN IN EXTREMITY
     Dosage: 300 MG, DAILY
     Dates: start: 20130304

REACTIONS (3)
  - Chest discomfort [Recovered/Resolved]
  - Nocturia [Unknown]
  - Dizziness [Unknown]
